FAERS Safety Report 4977689-1 (Version None)
Quarter: 2006Q1

REPORT INFORMATION
  Report Type: 
  Country: None (occurrence: None)
  Receive Date: 20060215
  Receipt Date: 20050411
  Transmission Date: 20060701
  Serious: No
  Sender: FDA-Public Use
  Company Number: MC200500342

PATIENT
  Age: 48 Year
  Sex: Female

DRUGS (3)
  1. ANGIOMAX [Suspect]
     Indication: CORONARY ANGIOPLASTY
     Dosage: 0.75 MG/KG, BOLUS, IV BOLUS
     Route: 040
  2. ANGIOMAX [Suspect]
     Dosage: 1.75 MG/KG, HR, INTRAVENOUS
     Route: 042
  3. PLAVIX [Concomitant]

REACTIONS (3)
  - ARTERIAL THROMBOSIS [None]
  - MYOCARDIAL INFARCTION [None]
  - STENT OCCLUSION [None]
